FAERS Safety Report 9797154 (Version 1)
Quarter: 2013Q4

REPORT INFORMATION
  Report Type: Spontaneous
  Country: IT (occurrence: None)
  Receive Date: 20131230
  Receipt Date: 20131230
  Transmission Date: 20140711
  Serious: Yes (Death)
  Sender: FDA-Public Use
  Company Number: FK201305546

PATIENT
  Age: 86 Year
  Sex: Female

DRUGS (5)
  1. METHOTREXATE (MANUFACTURER UNKNOWN) (METHOTREXATE) (METHOTREXATE) [Suspect]
     Indication: RHEUMATOID ARTHRITIS
  2. CIPROFLOXACIN [Suspect]
     Indication: URINARY TRACT INFECTION
     Route: 048
  3. ALLOPURINOL [Concomitant]
  4. ALENDRONIC ACID [Concomitant]
  5. VENLAFAXINE [Concomitant]

REACTIONS (2)
  - Drug interaction [None]
  - Pancytopenia [None]
